FAERS Safety Report 11392022 (Version 1)
Quarter: 2015Q3

REPORT INFORMATION
  Report Type: Spontaneous
  Country: ES (occurrence: None)
  Receive Date: 20150814
  Receipt Date: 20150814
  Transmission Date: 20151125
  Serious: No
  Sender: FDA-Public Use
  Company Number: 2015R1-101234

PATIENT
  Age: 28 Year
  Sex: Male

DRUGS (1)
  1. ASPIRIN (ACETYLSALICYLIC ACID) UNKNOWN 325MG [Suspect]
     Active Substance: ASPIRIN
     Indication: MIGRAINE

REACTIONS (2)
  - Anaphylactic reaction [None]
  - Food interaction [None]
